FAERS Safety Report 8444918-1 (Version None)
Quarter: 2012Q2

REPORT INFORMATION
  Report Type: 
  Country: None (occurrence: None)
  Receive Date: 20120612
  Receipt Date: 20120612
  Transmission Date: 20120825
  Serious: Yes (Death, Hospitalization)
  Sender: FDA-Public Use
  Company Number: None

PATIENT
  Age: 58 Year
  Sex: Female
  Weight: 98.8842 kg

DRUGS (2)
  1. PEGASYS/RIBAVIRIN, 180 MCG/200 MG XX [Suspect]
     Dosage: 180 MCG/1200 MG, SQ WKLY/PO DAILY
     Route: 048
  2. TELAPREVIR, 375 MG TAB LETS, VERTEX [Suspect]
     Indication: HEPATITIS C
     Dosage: 2 TAB, TID, PO
     Route: 048

REACTIONS (3)
  - RENAL FAILURE [None]
  - ACUTE HEPATIC FAILURE [None]
  - SEPSIS [None]
